FAERS Safety Report 5448711-3 (Version None)
Quarter: 2007Q3

REPORT INFORMATION
  Report Type: 
  Country: None (occurrence: None)
  Receive Date: 20070911
  Receipt Date: 20070905
  Transmission Date: 20080115
  Serious: Yes (Death, Hospitalization)
  Sender: FDA-Public Use
  Company Number: A0679894A

PATIENT
  Age: 8 Year
  Sex: Female

DRUGS (2)
  1. ADVAIR DISKUS 100/50 [Suspect]
     Indication: ASTHMA
     Route: 055
  2. SEREVENT [Suspect]
     Indication: ASTHMA
     Route: 055

REACTIONS (4)
  - ANXIETY [None]
  - DEATH [None]
  - INJURY [None]
  - PAIN [None]
